FAERS Safety Report 23238409 (Version 2)
Quarter: 2023Q4

REPORT INFORMATION
  Report Type: Spontaneous
  Country: US (occurrence: US)
  Receive Date: 20231129
  Receipt Date: 20231206
  Transmission Date: 20240110
  Serious: Yes (Other)
  Sender: FDA-Public Use
  Company Number: US-GSKCCFUS-Case-01145528_AE-67387

PATIENT

DRUGS (3)
  1. BENLYSTA [Suspect]
     Active Substance: BELIMUMAB
     Indication: Systemic lupus erythematosus
     Dosage: 200 MG/ML, WE
     Route: 058
     Dates: start: 2021
  2. BENLYSTA [Suspect]
     Active Substance: BELIMUMAB
  3. BENLYSTA [Suspect]
     Active Substance: BELIMUMAB
     Indication: Product used for unknown indication
     Dosage: UNK

REACTIONS (8)
  - Blindness unilateral [Not Recovered/Not Resolved]
  - Cataract [Not Recovered/Not Resolved]
  - Systemic lupus erythematosus [Unknown]
  - Pain in extremity [Not Recovered/Not Resolved]
  - Injection site pain [Recovered/Resolved]
  - Dizziness [Not Recovered/Not Resolved]
  - Skin lesion [Recovered/Resolved]
  - Injection site haemorrhage [Unknown]

NARRATIVE: CASE EVENT DATE: 20210824
